FAERS Safety Report 16864038 (Version 1)
Quarter: 2019Q3

REPORT INFORMATION
  Report Type: Spontaneous
  Country: IN (occurrence: IN)
  Receive Date: 20190927
  Receipt Date: 20190927
  Transmission Date: 20191005
  Serious: Yes (Life-Threatening, Disabling)
  Sender: FDA-Public Use
  Company Number: IN-ALLERGAN-1939152US

PATIENT

DRUGS (2)
  1. ESCITALOPRAM OXALATE UNK [Suspect]
     Active Substance: ESCITALOPRAM OXALATE
     Indication: PRODUCT USED FOR UNKNOWN INDICATION
     Dosage: UNK
  2. CIPROFLOXACIN. [Suspect]
     Active Substance: CIPROFLOXACIN
     Indication: CHRONIC KIDNEY DISEASE
     Dosage: UNK

REACTIONS (1)
  - Drug interaction [Unknown]
